FAERS Safety Report 7049171-1 (Version None)
Quarter: 2010Q4

REPORT INFORMATION
  Report Type: 
  Country: None (occurrence: None)
  Receive Date: 20101018
  Receipt Date: 20101005
  Transmission Date: 20110411
  Serious: Yes (Hospitalization, Other)
  Sender: FDA-Public Use
  Company Number: US-CELGENEUS-163-21880-10090980

PATIENT
  Sex: Male

DRUGS (2)
  1. REVLIMID [Suspect]
     Indication: MULTIPLE MYELOMA
     Route: 048
     Dates: start: 20100803
  2. REVLIMID [Suspect]
     Route: 048
     Dates: start: 20100101

REACTIONS (5)
  - ASTHENIA [None]
  - CARDIAC DISORDER [None]
  - MOOD SWINGS [None]
  - PNEUMONIA [None]
  - VISUAL IMPAIRMENT [None]
